FAERS Safety Report 14775892 (Version 1)
Quarter: 2018Q2

REPORT INFORMATION
  Report Type: Spontaneous
  Country: US (occurrence: US)
  Receive Date: 20180418
  Receipt Date: 20180418
  Transmission Date: 20180711
  Serious: Yes (Other)
  Sender: FDA-Public Use
  Company Number: US-TEVA-2018-US-882628

PATIENT
  Age: 13 Year
  Sex: Female

DRUGS (3)
  1. RISPERIDONE. [Suspect]
     Active Substance: RISPERIDONE
     Route: 065
  2. OLANZAPINE. [Suspect]
     Active Substance: OLANZAPINE
     Dosage: INITIAL DOSAGE NOT STATED; HOWEVER, HER MOTHER WAS GIVING THE PATIENT ADDITIONAL OLANZAPINE AS NE...
     Route: 065
  3. QUETIAPINE. [Suspect]
     Active Substance: QUETIAPINE
     Route: 065

REACTIONS (3)
  - Polyuria [Unknown]
  - Polydipsia [Unknown]
  - Hyperglycaemia [Not Recovered/Not Resolved]
